FAERS Safety Report 10708403 (Version 2)
Quarter: 2015Q1

REPORT INFORMATION
  Report Type: Report from Study
  Country: IL (occurrence: IL)
  Receive Date: 20150113
  Receipt Date: 20150113
  Transmission Date: 20150721
  Serious: Yes (Death, Hospitalization, Other)
  Sender: FDA-Public Use
  Company Number: IL-ABBVIE-14P-082-1235377-00

PATIENT
  Age: 59 Year
  Sex: Female

DRUGS (5)
  1. D.B.S. [Concomitant]
     Indication: PARKINSON^S DISEASE
  2. DUODOPA [Suspect]
     Active Substance: CARBIDOPA\LEVODOPA
     Indication: PARKINSON^S DISEASE
     Route: 050
     Dates: start: 201312
  3. DUODOPA [Suspect]
     Active Substance: CARBIDOPA\LEVODOPA
     Dosage: LOW DOSAGE FOR 24 HOURS
     Route: 050
  4. CIPRALEX [Concomitant]
     Active Substance: ESCITALOPRAM OXALATE
     Indication: PRODUCT USED FOR UNKNOWN INDICATION
  5. DUODOPA [Suspect]
     Active Substance: CARBIDOPA\LEVODOPA
     Dosage: FLOW RATE CONTINUOUS:2
     Route: 050

REACTIONS (5)
  - Death [Fatal]
  - General physical health deterioration [Unknown]
  - Infection [Unknown]
  - Seizure [Unknown]
  - Cognitive disorder [Unknown]
